FAERS Safety Report 14139843 (Version 1)
Quarter: 2017Q4

REPORT INFORMATION
  Report Type: Spontaneous
  Country: AU (occurrence: AU)
  Receive Date: 20171030
  Receipt Date: 20171030
  Transmission Date: 20180321
  Serious: Yes (Life-Threatening, Hospitalization, Other)
  Sender: FDA-Public Use
  Company Number: AU-ABBVIE-17K-008-2140875-00

PATIENT
  Sex: Male

DRUGS (1)
  1. DUODOPA [Suspect]
     Active Substance: CARBIDOPA\LEVODOPA
     Indication: PRODUCT USED FOR UNKNOWN INDICATION
     Dosage: 6.3ML/HR, FREQUENCY : 15 HOURS/DAY
     Route: 050
     Dates: start: 20150715

REACTIONS (5)
  - Small intestinal obstruction [Recovered/Resolved]
  - Bezoar [Unknown]
  - Device kink [Unknown]
  - Device occlusion [Unknown]
  - Small intestine gangrene [Unknown]

NARRATIVE: CASE EVENT DATE: 2017
